FAERS Safety Report 21873771 (Version 1)
Quarter: 2023Q1

REPORT INFORMATION
  Report Type: Spontaneous
  Country: SE (occurrence: SE)
  Receive Date: 20230117
  Receipt Date: 20230117
  Transmission Date: 20230417
  Serious: Yes (Other)
  Sender: FDA-Public Use
  Company Number: SE-FreseniusKabi-FK202300650

PATIENT
  Age: 67 Year
  Sex: Male

DRUGS (6)
  1. ETOPOSIDE [Suspect]
     Active Substance: ETOPOSIDE
     Indication: Myasthenic syndrome
     Dosage: REDUCED TO 80 PERCENT OF THE DOSE
  2. ETOPOSIDE [Suspect]
     Active Substance: ETOPOSIDE
     Dosage: THIRD AND FOURTH DOSES WERE FURTHER REDUCED TO 75 PERCENT
  3. ETOPOSIDE [Suspect]
     Active Substance: ETOPOSIDE
     Dosage: DAYS 1?3 IN 21 DAY CYCLES
  4. CARBOPLATIN [Suspect]
     Active Substance: CARBOPLATIN
     Indication: Myasthenic syndrome
     Dosage: AUC5 DAY 1
  5. CARBOPLATIN [Suspect]
     Active Substance: CARBOPLATIN
     Dosage: REDUCED TO 80 PERCENT OF THE DOSE
  6. CARBOPLATIN [Suspect]
     Active Substance: CARBOPLATIN
     Dosage: THIRD AND FOURTH DOSES WERE FURTHER REDUCED TO 75 PERCENT

REACTIONS (2)
  - Pulmonary embolism [Unknown]
  - Febrile neutropenia [Unknown]
